FAERS Safety Report 4941800-9 (Version None)
Quarter: 2006Q1

REPORT INFORMATION
  Report Type: 
  Country: None (occurrence: None)
  Receive Date: 20060307
  Receipt Date: 20060222
  Transmission Date: 20060701
  Serious: Yes (Other)
  Sender: FDA-Public Use
  Company Number: 222429

PATIENT
  Age: 55 Year
  Sex: Female
  Weight: 64.9 kg

DRUGS (9)
  1. HERCEPTIN [Suspect]
     Indication: BREAST CANCER METASTATIC
     Dosage: SEE IMAGE
     Route: 042
     Dates: start: 20051121
  2. TAXOL [Suspect]
     Indication: BREAST CANCER
     Dosage: 128 MG, 1/WEEK, INTRAVENOUS
     Route: 042
     Dates: start: 20051121, end: 20060117
  3. BACTRIM [Concomitant]
  4. PRAMOSONE CREAM (HYDROCORTISONE ACETATE, PRAMOXINE HYDROCHLORIDE) [Concomitant]
  5. FLUOCINONIDE CREAM (FLUOCINONIDE) [Concomitant]
  6. CETAPHIL (CETYL ALCOHOL, PROPYLENE GLYCOL) [Concomitant]
  7. CLOBEX [Concomitant]
  8. SARNA LOTION (CAMPHOR, MENTHOL, PHENOL) [Concomitant]
  9. ACLOVATE (ALCLOMETASONE DIPROPIONATE) [Concomitant]

REACTIONS (4)
  - ECZEMA [None]
  - ERYTHEMA [None]
  - RASH MACULAR [None]
  - SKIN EXFOLIATION [None]
